FAERS Safety Report 10802575 (Version 2)
Quarter: 2015Q2

REPORT INFORMATION
  Report Type: Spontaneous
  Country: JP (occurrence: JP)
  Receive Date: 20150217
  Receipt Date: 20150413
  Transmission Date: 20150821
  Serious: Yes (Other)
  Sender: FDA-Public Use
  Company Number: JP-BAYER-2015-018026

PATIENT
  Age: 62 Year
  Sex: Female
  Weight: 68 kg

DRUGS (6)
  1. AVELOX [Suspect]
     Active Substance: MOXIFLOXACIN HYDROCHLORIDE
     Indication: PHARYNGITIS
  2. AVELOX [Suspect]
     Active Substance: MOXIFLOXACIN HYDROCHLORIDE
     Indication: BRONCHITIS
     Dosage: 400 MG, QD
     Route: 048
     Dates: start: 20150124, end: 20150125
  3. MONTELUKAST [Suspect]
     Active Substance: MONTELUKAST SODIUM
     Indication: RHINITIS ALLERGIC
     Dosage: 3 DF, TID
     Route: 048
     Dates: start: 20150124, end: 20150125
  4. GASLON N [Concomitant]
     Dosage: UNK
     Route: 048
  5. TRANSAMIN [Suspect]
     Active Substance: TRANEXAMIC ACID
     Indication: PHARYNGITIS
     Dosage: 3 DF, TID
     Route: 048
     Dates: start: 20150124, end: 20150125
  6. RESPLEN [Concomitant]
     Active Substance: EPRAZINONE
     Dosage: UNK
     Route: 048

REACTIONS (6)
  - Drug hypersensitivity [Recovering/Resolving]
  - Visual acuity reduced [Recovering/Resolving]
  - Palpitations [Recovering/Resolving]
  - Heart rate increased [Recovering/Resolving]
  - Rash [Recovering/Resolving]
  - Erythema [Recovering/Resolving]

NARRATIVE: CASE EVENT DATE: 20150125
